FAERS Safety Report 12441596 (Version 1)
Quarter: 2016Q2

REPORT INFORMATION
  Report Type: Spontaneous
  Country: IL (occurrence: IL)
  Receive Date: 20160607
  Receipt Date: 20160607
  Transmission Date: 20160815
  Serious: Yes (Other)
  Sender: FDA-Public Use
  Company Number: PHHY2016IL077505

PATIENT
  Age: 80 Year
  Sex: Female

DRUGS (1)
  1. REVOLADE [Suspect]
     Active Substance: ELTROMBOPAG
     Indication: B-CELL LYMPHOMA
     Dosage: 50 MG, QD
     Route: 048

REACTIONS (5)
  - Skin infection [Unknown]
  - Product use issue [Unknown]
  - Wound infection [Unknown]
  - Tremor [Unknown]
  - Pyrexia [Unknown]
